FAERS Safety Report 8807278 (Version 1)
Quarter: 2012Q4

REPORT INFORMATION
  Report Type: 
  Country: US (occurrence: US)
  Receive Date: 20120925
  Receipt Date: 20120925
  Transmission Date: 20130627
  Serious: No
  Sender: FDA-Public Use
  Company Number: US-ASTRAZENECA-2012SE73556

PATIENT
  Age: 75 Year
  Sex: Female
  Weight: 78.5 kg

DRUGS (4)
  1. CRESTOR [Suspect]
     Indication: BLOOD CHOLESTEROL INCREASED
     Route: 048
     Dates: start: 201207
  2. DIOVAN [Concomitant]
     Indication: BLOOD PRESSURE ABNORMAL
  3. FLUID PILL [Concomitant]
  4. METOPROLOL TARTRATE [Concomitant]
     Indication: HYPERTENSION

REACTIONS (3)
  - Pain [Unknown]
  - Osteoarthritis [Unknown]
  - Bone pain [Unknown]
